FAERS Safety Report 14284703 (Version 1)
Quarter: 2017Q4

REPORT INFORMATION
  Report Type: Spontaneous
  Country: US (occurrence: US)
  Receive Date: 20171214
  Receipt Date: 20171214
  Transmission Date: 20180321
  Serious: No
  Sender: FDA-Public Use
  Company Number: US-BIOGEN-2017BI00494348

PATIENT

DRUGS (1)
  1. TYSABRI [Suspect]
     Active Substance: NATALIZUMAB
     Indication: MULTIPLE SCLEROSIS
     Route: 065

REACTIONS (5)
  - Limb discomfort [Unknown]
  - Urinary tract infection [Unknown]
  - Fatigue [Unknown]
  - Muscle spasms [Unknown]
  - Tremor [Unknown]

NARRATIVE: CASE EVENT DATE: 2017
